FAERS Safety Report 6062816-8 (Version None)
Quarter: 2009Q1

REPORT INFORMATION
  Report Type: 
  Country: None (occurrence: None)
  Receive Date: 20090202
  Receipt Date: 20090202
  Transmission Date: 20090719
  Serious: Yes (Hospitalization)
  Sender: FDA-Public Use
  Company Number: None

PATIENT
  Age: 53 Year
  Sex: Male
  Weight: 89.8122 kg

DRUGS (1)
  1. SPRYCEL [Suspect]
     Indication: CHRONIC MYELOID LEUKAEMIA
     Dosage: 50 MG 2 QAM PO
     Route: 048
     Dates: start: 20081113, end: 20090107

REACTIONS (4)
  - ARTHRITIS INFECTIVE [None]
  - BACK DISORDER [None]
  - INFECTION [None]
  - PLATELET COUNT DECREASED [None]
